FAERS Safety Report 6424976-6 (Version None)
Quarter: 2009Q4

REPORT INFORMATION
  Report Type: 
  Country: None (occurrence: None)
  Receive Date: 20091102
  Receipt Date: 20091102
  Transmission Date: 20100525
  Serious: Yes (Hospitalization)
  Sender: FDA-Public Use
  Company Number: None

PATIENT
  Age: 74 Year
  Sex: Male

DRUGS (2)
  1. TORSEMIDE [Suspect]
     Dosage: 200 MG BID PO
     Route: 048
     Dates: start: 20080112, end: 20081112
  2. METOLAZONE [Suspect]
     Dosage: 5 MG OTHER PO
     Route: 048
     Dates: start: 20080928, end: 20081128

REACTIONS (1)
  - RENAL FAILURE ACUTE [None]
